FAERS Safety Report 16817859 (Version 1)
Quarter: 2019Q3

REPORT INFORMATION
  Report Type: Report from Study
  Country: US (occurrence: US)
  Receive Date: 20190917
  Receipt Date: 20190917
  Transmission Date: 20191005
  Serious: Yes (Life-Threatening, Hospitalization, Other)
  Sender: FDA-Public Use
  Company Number: US-BRISTOL-MYERS SQUIBB COMPANY-BMS-2019-089836

PATIENT
  Age: 43 Year
  Sex: Female

DRUGS (1)
  1. ABATACEPT [Suspect]
     Active Substance: ABATACEPT
     Indication: RHEUMATOID ARTHRITIS
     Dosage: UNK UNK, EVERY 2 WEEKS FOR THE LOADING DOSE
     Route: 042
     Dates: start: 201904

REACTIONS (3)
  - Sepsis [Unknown]
  - Kidney infection [Unknown]
  - Poor venous access [Unknown]

NARRATIVE: CASE EVENT DATE: 20190504
